FAERS Safety Report 4699663-5 (Version None)
Quarter: 2005Q2

REPORT INFORMATION
  Report Type: 
  Country: None (occurrence: None)
  Receive Date: 20050623
  Receipt Date: 20050608
  Transmission Date: 20051028
  Serious: Yes (Hospitalization)
  Sender: FDA-Public Use
  Company Number: RENA-11391

PATIENT
  Age: 70 Year
  Sex: Male
  Weight: 69.5 kg

DRUGS (15)
  1. RENAGEL [Suspect]
     Indication: HYPERPHOSPHATAEMIA
     Dosage: 0.25 G TID PO
     Route: 048
     Dates: start: 20041028
  2. RENAGEL [Suspect]
     Indication: HYPERPHOSPHATAEMIA
     Dosage: 0.5 G TID PO
     Route: 048
     Dates: start: 20040907, end: 20041027
  3. PRECIPITATED CALCIUM CARBONATE [Suspect]
     Indication: DRUG USE FOR UNKNOWN INDICATION
  4. ASPIRIN DIALUMINATE [Suspect]
     Indication: DRUG USE FOR UNKNOWN INDICATION
  5. TICLOPIDINE HCL [Suspect]
     Indication: DRUG USE FOR UNKNOWN INDICATION
  6. HEPARIN SODIUM [Suspect]
     Indication: DRUG USE FOR UNKNOWN INDICATION
     Dates: start: 20041122
  7. HUMAN RED BLOOD CELLS [Concomitant]
  8. PERSENNID [Concomitant]
  9. ALOSENN [Concomitant]
  10. ROHYPONOL [Concomitant]
  11. ZYLORIC [Concomitant]
  12. LIPOVAS [Concomitant]
  13. RISUMIC [Concomitant]
  14. INDERAL [Concomitant]
  15. GASCON [Concomitant]

REACTIONS (3)
  - ANAEMIA [None]
  - CORONARY ANGIOPLASTY [None]
  - SMALL INTESTINAL HAEMORRHAGE [None]
